FAERS Safety Report 10508831 (Version 2)
Quarter: 2014Q4

REPORT INFORMATION
  Report Type: Spontaneous
  Country: FR (occurrence: FR)
  Receive Date: 20141009
  Receipt Date: 20141009
  Transmission Date: 20150528
  Serious: Yes (Life-Threatening)
  Sender: FDA-Public Use
  Company Number: FR-ASTRAZENECA-2014SE68357

PATIENT
  Age: 3322 Day
  Sex: Male

DRUGS (7)
  1. DIPRIVAN [Suspect]
     Active Substance: PROPOFOL
     Indication: SEDATION
     Route: 042
     Dates: start: 20140901
  2. DIPRIVAN [Suspect]
     Active Substance: PROPOFOL
     Indication: INTRACRANIAL PRESSURE INCREASED
     Route: 042
     Dates: start: 20140901
  3. DIPRIVAN [Suspect]
     Active Substance: PROPOFOL
     Indication: INTRACRANIAL PRESSURE INCREASED
     Dosage: 20-100 MG BOLUS
     Route: 042
  4. DIPRIVAN [Suspect]
     Active Substance: PROPOFOL
     Indication: SEDATION
     Dosage: 20-100 MG BOLUS
     Route: 042
  5. ULTIVA [Concomitant]
     Active Substance: REMIFENTANIL HYDROCHLORIDE
     Indication: SEDATION
     Dates: start: 20140901
  6. DIPRIVAN [Suspect]
     Active Substance: PROPOFOL
     Indication: SEDATION
     Route: 042
     Dates: start: 20140901
  7. DIPRIVAN [Suspect]
     Active Substance: PROPOFOL
     Indication: INTRACRANIAL PRESSURE INCREASED
     Route: 042
     Dates: start: 20140901

REACTIONS (4)
  - Off label use [Unknown]
  - Rhabdomyolysis [Recovered/Resolved]
  - Lactic acidosis [Recovered/Resolved]
  - Propofol infusion syndrome [Recovered/Resolved]

NARRATIVE: CASE EVENT DATE: 20140901
